FAERS Safety Report 21403346 (Version 2)
Quarter: 2022Q4

REPORT INFORMATION
  Report Type: Spontaneous
  Country: BR (occurrence: BR)
  Receive Date: 20221003
  Receipt Date: 20221006
  Transmission Date: 20230113
  Serious: Yes (Other)
  Sender: FDA-Public Use
  Company Number: BR-ABBVIE-4134423

PATIENT
  Age: 55 Year
  Sex: Female

DRUGS (3)
  1. RINVOQ [Suspect]
     Active Substance: UPADACITINIB
     Indication: Arthritis reactive
     Dosage: 1 TABLET
     Route: 048
     Dates: start: 20211117
  2. Brasart HCT (Hydrochlorothiazide/Valsartan) [Concomitant]
     Indication: Hypertension
     Dosage: 1 TABLET
     Route: 048
  3. NIMESULIDE [Concomitant]
     Active Substance: NIMESULIDE
     Indication: Pain
     Dosage: 500 MILLIGRAM
     Route: 048

REACTIONS (3)
  - Hepatitis B [Recovered/Resolved]
  - Pain [Not Recovered/Not Resolved]
  - Arthralgia [Not Recovered/Not Resolved]

NARRATIVE: CASE EVENT DATE: 20220801
